FAERS Safety Report 24177668 (Version 1)
Quarter: 2024Q3

REPORT INFORMATION
  Report Type: Report from Study
  Country: CN (occurrence: CN)
  Receive Date: 20240806
  Receipt Date: 20240806
  Transmission Date: 20241016
  Serious: Yes (Other)
  Sender: JOHNSON AND JOHNSON
  Company Number: CN-JNJFOC-20240775559

PATIENT
  Age: 18 Year
  Sex: Male

DRUGS (2)
  1. DARATUMUMAB [Suspect]
     Active Substance: DARATUMUMAB
     Indication: Acute myeloid leukaemia refractory
     Route: 065
     Dates: start: 201807, end: 202305
  2. VENETOCLAX [Suspect]
     Active Substance: VENETOCLAX
     Indication: Acute myeloid leukaemia refractory
     Route: 065

REACTIONS (8)
  - Leukopenia [Unknown]
  - Thrombocytopenia [Unknown]
  - Neutropenia [Unknown]
  - Anaemia [Unknown]
  - Hypokalaemia [Unknown]
  - Febrile neutropenia [Unknown]
  - Infusion related reaction [Unknown]
  - Off label use [Unknown]
